FAERS Safety Report 23093460 (Version 3)
Quarter: 2023Q4

REPORT INFORMATION
  Report Type: Report from Study
  Country: US (occurrence: US)
  Receive Date: 20231023
  Receipt Date: 20231121
  Transmission Date: 20240110
  Serious: Yes (Hospitalization, Other)
  Sender: FDA-Public Use
  Company Number: US-ABBVIE-5457928

PATIENT
  Sex: Male

DRUGS (5)
  1. VENCLEXTA [Suspect]
     Active Substance: VENETOCLAX
     Indication: Acute myeloid leukaemia
     Dosage: DOSE 200MG DAILY FOR DAYS 1-14 OF A 28 DAY CYCLE, CESSATION DATE 2023-10
     Route: 048
     Dates: start: 20231009
  2. VENCLEXTA [Suspect]
     Active Substance: VENETOCLAX
     Indication: Acute myeloid leukaemia
     Dosage: ONSET 2023-10, FORM STRENGTH 400 MILLIGRAM
     Route: 048
  3. TIBSOVO [Suspect]
     Active Substance: IVOSIDENIB
     Indication: Acute myeloid leukaemia
     Route: 065
     Dates: start: 20220708
  4. METOPROLOL [Concomitant]
     Active Substance: METOPROLOL
     Indication: Product used for unknown indication
  5. METOPROLOL [Concomitant]
     Active Substance: METOPROLOL
     Indication: Product used for unknown indication

REACTIONS (13)
  - Platelet transfusion [Unknown]
  - Haemoglobin decreased [Unknown]
  - Platelet count decreased [Unknown]
  - Asthenia [Unknown]
  - Haemoglobin decreased [Unknown]
  - Hospitalisation [Unknown]
  - Dyspnoea [Unknown]
  - Haemoglobin abnormal [Unknown]
  - Pneumonia [Unknown]
  - Platelet count decreased [Recovered/Resolved]
  - Platelet count decreased [Unknown]
  - Therapeutic product effect decreased [Unknown]
  - Therapeutic product effect decreased [Unknown]

NARRATIVE: CASE EVENT DATE: 20230101
